FAERS Safety Report 4596809-4 (Version None)
Quarter: 2005Q1

REPORT INFORMATION
  Report Type: 
  Country: None (occurrence: None)
  Receive Date: 20050228
  Receipt Date: 20050221
  Transmission Date: 20050727
  Serious: Yes (Hospitalization)
  Sender: FDA-Public Use
  Company Number: 2005033954

PATIENT
  Sex: Female

DRUGS (1)
  1. LIPITOR [Suspect]
     Indication: ILL-DEFINED DISORDER
     Dosage: 10 MG (1 IN 1 D), ORAL
     Route: 048

REACTIONS (1)
  - THROMBOTIC THROMBOCYTOPENIC PURPURA [None]
